FAERS Safety Report 25215038 (Version 1)
Quarter: 2025Q2

REPORT INFORMATION
  Report Type: Spontaneous
  Country: CA (occurrence: CA)
  Receive Date: 20250418
  Receipt Date: 20250418
  Transmission Date: 20250716
  Serious: Yes (Other)
  Sender: ACCORD
  Company Number: None

PATIENT
  Age: 57 Year
  Sex: Female

DRUGS (8)
  1. OXALIPLATIN [Suspect]
     Active Substance: OXALIPLATIN
     Indication: Colon cancer stage III
     Route: 042
  2. PEMETREXED DISODIUM [Suspect]
     Active Substance: PEMETREXED DISODIUM
     Indication: Colon cancer stage III
     Route: 042
  3. DEXAMETHASONE [Concomitant]
     Active Substance: DEXAMETHASONE
     Indication: Supportive care
     Route: 048
  4. FOLIC ACID [Concomitant]
     Active Substance: FOLIC ACID
     Indication: Supportive care
     Route: 048
  5. METOCLOPRAMIDE [Concomitant]
     Active Substance: METOCLOPRAMIDE
     Indication: Vomiting
     Route: 048
  6. ONDANSETRON [Concomitant]
     Active Substance: ONDANSETRON
     Route: 048
  7. VITAMIN B12 [Concomitant]
     Active Substance: CYANOCOBALAMIN
     Indication: Supportive care
     Route: 030
  8. OXALIPLATIN [Suspect]
     Active Substance: OXALIPLATIN
     Indication: Colon cancer stage III

REACTIONS (10)
  - Pruritus [Recovered/Resolved]
  - Dysaesthesia [Recovered/Resolved]
  - Rash maculo-papular [Recovered/Resolved]
  - Mouth ulceration [Recovered/Resolved]
  - Off label use [Recovered/Resolved]
  - Toxicity to various agents [Recovered/Resolved]
  - Fatigue [Recovered/Resolved]
  - Malignant neoplasm progression [Recovered/Resolved]
  - Neuropathy peripheral [Recovered/Resolved]
  - Papillary cystadenoma lymphomatosum [Recovered/Resolved]
